FAERS Safety Report 8584938-X (Version None)
Quarter: 2012Q3

REPORT INFORMATION
  Report Type: 
  Country: None (occurrence: None)
  Receive Date: 20120730
  Receipt Date: 20120716
  Transmission Date: 20120928
  Serious: Yes (Other)
  Sender: FDA-Public Use
  Company Number: FK201201991

PATIENT
  Age: 12 Year
  Sex: Male

DRUGS (2)
  1. FUROSEMIDE [Suspect]
     Indication: RENAL IMPAIRMENT
     Dosage: DAILY INFUSIONS
  2. ALBUMIN (HUMAN) [Concomitant]

REACTIONS (3)
  - PULMONARY EMBOLISM [None]
  - GENERALISED OEDEMA [None]
  - PULMONARY INFARCTION [None]
